FAERS Safety Report 11681576 (Version 1)
Quarter: 2015Q4

REPORT INFORMATION
  Report Type: Spontaneous
  Country: US (occurrence: US)
  Receive Date: 20151029
  Receipt Date: 20151029
  Transmission Date: 20160304
  Serious: No
  Sender: FDA-Public Use
  Company Number: US-PFIZER INC-2015359879

PATIENT
  Age: 41 Year
  Sex: Male

DRUGS (2)
  1. CELECOXIB. [Suspect]
     Active Substance: CELECOXIB
     Indication: INTERVERTEBRAL DISC PROTRUSION
     Dosage: 2 CAPSULES A DAY
  2. CELECOXIB. [Interacting]
     Active Substance: CELECOXIB
     Indication: BACK PAIN
     Dosage: 1 DF, TWICE A DAY EVERY DAY

REACTIONS (5)
  - Alcohol interaction [Unknown]
  - Influenza [Unknown]
  - Nausea [Unknown]
  - Chills [Unknown]
  - Abdominal pain upper [Unknown]
